FAERS Safety Report 7003461-7 (Version None)
Quarter: 2010Q3

REPORT INFORMATION
  Report Type: 
  Country: None (occurrence: None)
  Receive Date: 20100920
  Receipt Date: 20100908
  Transmission Date: 20110219
  Serious: Yes (Hospitalization)
  Sender: FDA-Public Use
  Company Number: JP-AMGEN-US390983

PATIENT
  Sex: Female
  Weight: 44 kg

DRUGS (11)
  1. ENBREL [Suspect]
     Indication: RHEUMATOID ARTHRITIS
     Route: 058
     Dates: start: 20090417, end: 20090605
  2. ENBREL [Suspect]
     Route: 058
     Dates: start: 20090612, end: 20100118
  3. ENBREL [Suspect]
     Dosage: UNKNOWN
     Dates: start: 20100301
  4. RHEUMATREX [Suspect]
     Indication: RHEUMATOID ARTHRITIS
     Route: 048
     Dates: start: 20081031, end: 20100118
  5. RHEUMATREX [Suspect]
     Dosage: UNKNOWN
     Dates: start: 20100301
  6. RHEUMATREX [Suspect]
     Dosage: 6 MG EVERY 1 TRI
     Route: 048
     Dates: start: 20081219, end: 20100118
  7. RHEUMATREX [Suspect]
     Dosage: UNSPECIFIED
     Dates: start: 20100301
  8. PREDNISOLONE [Suspect]
     Indication: RHEUMATOID ARTHRITIS
     Route: 048
     Dates: start: 20090417, end: 20090927
  9. PREDNISOLONE [Suspect]
     Route: 048
     Dates: start: 20090928
  10. RISEDRONATE SODIUM [Concomitant]
     Indication: OSTEOPOROSIS
     Route: 048
     Dates: start: 20090417
  11. FOLIAMIN [Concomitant]
     Indication: PROPHYLAXIS
     Route: 048
     Dates: start: 20090417, end: 20100118

REACTIONS (2)
  - PLEURISY [None]
  - STAPHYLOCOCCAL INFECTION [None]
